FAERS Safety Report 6093246-0 (Version None)
Quarter: 2009Q1

REPORT INFORMATION
  Report Type: 
  Country: None (occurrence: None)
  Receive Date: 20090224
  Receipt Date: 20090224
  Transmission Date: 20090719
  Serious: Yes (Other)
  Sender: FDA-Public Use
  Company Number: None

PATIENT
  Sex: Male
  Weight: 100 kg

DRUGS (11)
  1. SOTALOL HCL [Suspect]
     Dosage: 120MG TABLET 120 MG BID
     Route: 048
     Dates: start: 20081113, end: 20090223
  2. ASPIRIN [Concomitant]
  3. CLOPIDOGREL [Concomitant]
  4. COUMADIN [Concomitant]
  5. LEVOTHROID [Concomitant]
  6. LIPITOR [Concomitant]
  7. NASONEX [Concomitant]
  8. PRILOSEC [Concomitant]
  9. TERAZOSIN HCL [Concomitant]
  10. VITAMIN B12 [Concomitant]
  11. WARFARIN SODIUM [Concomitant]

REACTIONS (1)
  - DYSPNOEA [None]
